FAERS Safety Report 5744083-5 (Version None)
Quarter: 2008Q2

REPORT INFORMATION
  Report Type: 
  Country: None (occurrence: None)
  Receive Date: 20080516
  Receipt Date: 20080430
  Transmission Date: 20081010
  Serious: Yes (Hospitalization)
  Sender: FDA-Public Use
  Company Number: 8032454

PATIENT
  Age: 62 Year
  Sex: Female

DRUGS (6)
  1. METHYLPHENIDATE HCL [Suspect]
     Indication: MAJOR DEPRESSION
     Dosage: 10 MG/D
  2. SERTRALINE [Suspect]
     Indication: MAJOR DEPRESSION
  3. SERTRALINE [Suspect]
     Indication: MAJOR DEPRESSION
     Dosage: 100 MG /D
  4. PAROXETINE HCL [Concomitant]
  5. MILNACIPRAN [Concomitant]
  6. AMOXAPINE [Concomitant]

REACTIONS (1)
  - SEROTONIN SYNDROME [None]
